FAERS Safety Report 5483832-0 (Version None)
Quarter: 2007Q4

REPORT INFORMATION
  Report Type: 
  Country: None (occurrence: None)
  Receive Date: 20071010
  Receipt Date: 20070924
  Transmission Date: 20080405
  Serious: Yes (Hospitalization, Other)
  Sender: FDA-Public Use
  Company Number: 2007BI020386

PATIENT
  Age: 53 Year
  Sex: Female
  Weight: 56.6996 kg

DRUGS (6)
  1. TYSABRI [Suspect]
     Indication: MULTIPLE SCLEROSIS
     Dosage: 300 MG; QM; IV
     Route: 042
     Dates: start: 20070614
  2. DILANTIN [Concomitant]
  3. NEURONTIN [Concomitant]
  4. LAMICTAL [Concomitant]
  5. PROZAC [Concomitant]
  6. TYLENOL (CAPLET) [Concomitant]

REACTIONS (10)
  - ALANINE AMINOTRANSFERASE INCREASED [None]
  - ASPARTATE AMINOTRANSFERASE INCREASED [None]
  - ASTHENIA [None]
  - CHEST DISCOMFORT [None]
  - COORDINATION ABNORMAL [None]
  - DYSARTHRIA [None]
  - HEPATIC ENZYME INCREASED [None]
  - HYPERTONIA [None]
  - MUSCLE SPASMS [None]
  - MUSCULOSKELETAL STIFFNESS [None]
